FAERS Safety Report 20982666 (Version 1)
Quarter: 2022Q2

REPORT INFORMATION
  Report Type: Spontaneous
  Country: US (occurrence: US)
  Receive Date: 20220620
  Receipt Date: 20220620
  Transmission Date: 20220721
  Serious: No
  Sender: FDA-Public Use
  Company Number: US-LUPIN PHARMACEUTICALS INC.-2022-08745

PATIENT
  Sex: Female

DRUGS (1)
  1. BETAMETHASONE [Suspect]
     Active Substance: BETAMETHASONE
     Indication: Product used for unknown indication
     Dosage: UNK, A DOSE OF BETAMETHASONE WAS GIVEN LESS THAN 24 HOURS PRIOR TO DELIVERY
     Route: 065

REACTIONS (1)
  - Maternal exposure during delivery [Unknown]
